FAERS Safety Report 5918849-2 (Version None)
Quarter: 2008Q4

REPORT INFORMATION
  Report Type: 
  Country: None (occurrence: None)
  Receive Date: 20081015
  Receipt Date: 20081002
  Transmission Date: 20090506
  Serious: Yes (Hospitalization, Other)
  Sender: FDA-Public Use
  Company Number: US-AMGEN-US311204

PATIENT
  Sex: Female

DRUGS (2)
  1. ENBREL [Suspect]
     Indication: RHEUMATOID ARTHRITIS
     Route: 058
     Dates: start: 20051005
  2. METHOTREXATE SODIUM [Concomitant]
     Route: 048
     Dates: start: 20050601

REACTIONS (7)
  - ARTHRITIS [None]
  - EPISTAXIS [None]
  - INFLAMMATION [None]
  - LUNG DISORDER [None]
  - MENISCUS OPERATION [None]
  - MYOCARDIAL INFARCTION [None]
  - POOR QUALITY SLEEP [None]
